FAERS Safety Report 4371898-0 (Version None)
Quarter: 2004Q2

REPORT INFORMATION
  Report Type: 
  Country: None (occurrence: None)
  Receive Date: 20040602
  Receipt Date: 20040517
  Transmission Date: 20050107
  Serious: Yes (Death)
  Sender: FDA-Public Use
  Company Number: USA-2004-0015172

PATIENT
  Age: 44 Year
  Sex: Female
  Weight: 62.1 kg

DRUGS (3)
  1. OXYCODONE HCL [Suspect]
  2. ETHANOL (ETHANOL) [Suspect]
  3. ACETAMINOPHEN [Suspect]

REACTIONS (5)
  - ATHEROSCLEROSIS [None]
  - BLOOD ALCOHOL INCREASED [None]
  - CORONARY ARTERY STENOSIS [None]
  - DRUG TOXICITY [None]
  - HYPERTENSIVE HEART DISEASE [None]
